FAERS Safety Report 16872422 (Version 1)
Quarter: 2019Q4

REPORT INFORMATION
  Report Type: Spontaneous
  Country: GB (occurrence: GB)
  Receive Date: 20191001
  Receipt Date: 20191001
  Transmission Date: 20200122
  Serious: Yes (Life-Threatening)
  Sender: FDA-Public Use
  Company Number: GB-TEVA-2019-GB-1114020

PATIENT
  Age: 85 Year
  Sex: Female

DRUGS (8)
  1. CO-AMOXICLAV [Concomitant]
     Active Substance: AMOXICILLIN\CLAVULANATE POTASSIUM
  2. METFORMIN [Concomitant]
     Active Substance: METFORMIN HYDROCHLORIDE
  3. ATORVASTATIN [Concomitant]
     Active Substance: ATORVASTATIN
  4. AMOXICILLIN. [Concomitant]
     Active Substance: AMOXICILLIN
  5. CIPROFLOXACIN. [Concomitant]
     Active Substance: CIPROFLOXACIN
  6. LERCANIDIPINE [Concomitant]
     Active Substance: LERCANIDIPINE
  7. CLOPIDOGREL [Concomitant]
     Active Substance: CLOPIDOGREL BISULFATE
  8. LEVOFLOXACIN. [Suspect]
     Active Substance: LEVOFLOXACIN
     Route: 065

REACTIONS (1)
  - Platelet count decreased [Recovering/Resolving]
